FAERS Safety Report 16260870 (Version 1)
Quarter: 2019Q2

REPORT INFORMATION
  Report Type: Spontaneous
  Country: ES (occurrence: ES)
  Receive Date: 20190501
  Receipt Date: 20190501
  Transmission Date: 20190711
  Serious: Yes (Other)
  Sender: FDA-Public Use
  Company Number: ES-TEVA-2019-ES-1043252

PATIENT
  Age: 46 Year
  Sex: Male
  Weight: 88 kg

DRUGS (6)
  1. OMEPRAZOL (2141A) [Concomitant]
     Active Substance: OMEPRAZOLE
     Indication: PROPHYLAXIS AGAINST GASTROINTESTINAL ULCER
     Dosage: 20 MILLIGRAM DAILY; C/24 HOURS
     Route: 048
     Dates: start: 20181120
  2. ACETILSALICILICO ACIDO (176A) [Concomitant]
     Active Substance: ASPIRIN
     Indication: ACUTE MYOCARDIAL INFARCTION
     Dosage: 100 MG C/24 HORAS
     Route: 048
     Dates: start: 20181120
  3. EZETIMIBA (7432A) [Concomitant]
     Active Substance: EZETIMIBE
     Indication: DYSLIPIDAEMIA
     Dosage: 10 MILLIGRAM DAILY; C/24 HOURS
     Route: 048
     Dates: start: 20181120
  4. BISOPROLOL (2328A) [Concomitant]
     Active Substance: BISOPROLOL
     Indication: ACUTE MYOCARDIAL INFARCTION
     Dosage: 2.5 MILLIGRAM DAILY; C/24 HOURS
     Route: 048
     Dates: start: 20181120
  5. ROSUVASTATIN. [Suspect]
     Active Substance: ROSUVASTATIN
     Indication: DYSLIPIDAEMIA
     Dosage: 10 MILLIGRAM DAILY; C/24H HOURS
     Route: 048
     Dates: start: 20181120, end: 20181204
  6. TICAGRELOR (8461A) [Concomitant]
     Indication: ACUTE MYOCARDIAL INFARCTION
     Dosage: 90 MILLIGRAM DAILY;  C/ 12 HOURS
     Route: 048
     Dates: start: 20181120

REACTIONS (1)
  - Muscle rupture [Recovered/Resolved]

NARRATIVE: CASE EVENT DATE: 20181130
